FAERS Safety Report 6368212-8 (Version None)
Quarter: 2009Q3

REPORT INFORMATION
  Report Type: 
  Country: None (occurrence: None)
  Receive Date: 20090922
  Receipt Date: 20090915
  Transmission Date: 20100115
  Serious: Yes (Other)
  Sender: FDA-Public Use
  Company Number: US-BAYER-200923878NA

PATIENT
  Age: 92 Year
  Sex: Male

DRUGS (16)
  1. AVELOX [Suspect]
     Indication: DRUG USE FOR UNKNOWN INDICATION
     Dates: start: 20090401
  2. ASPIRIN [Concomitant]
  3. AVODART [Concomitant]
  4. OMEPRAZOLE [Concomitant]
  5. COZAAR [Concomitant]
     Dosage: TOTAL DAILY DOSE: 100 MG
  6. POTASSIUM CHLORIDE [Concomitant]
     Dosage: TOTAL DAILY DOSE: 20 MEQ
  7. FUROSEMIDE [Concomitant]
     Dosage: TOTAL DAILY DOSE: 40 MG
  8. SPIRIVA [Concomitant]
  9. ASMANEX TWISTHALER [Concomitant]
  10. NASONEX [Concomitant]
  11. ASCORBIC ACID [Concomitant]
  12. SIMVASTATIN [Concomitant]
     Dates: end: 20090601
  13. TAMSULOSIN HCL [Concomitant]
     Dosage: TOTAL DAILY DOSE: 4 MG
  14. VITAMIN B COMPLEX CAP [Concomitant]
  15. QUALAQUIN [Concomitant]
  16. ZOCOR [Concomitant]

REACTIONS (5)
  - HEPATITIS [None]
  - JAUNDICE [None]
  - LIVER FUNCTION TEST ABNORMAL [None]
  - OEDEMA [None]
  - PRURITUS [None]
